FAERS Safety Report 23588846 (Version 3)
Quarter: 2024Q2

REPORT INFORMATION
  Report Type: Spontaneous
  Country: JP (occurrence: None)
  Receive Date: 20240304
  Receipt Date: 20240611
  Transmission Date: 20240715
  Serious: Yes (Other)
  Sender: FDA-Public Use
  Company Number: JP-ROCHE-3498819

PATIENT
  Age: 59 Year
  Sex: Female

DRUGS (6)
  1. XOFLUZA [Suspect]
     Active Substance: BALOXAVIR MARBOXIL
     Indication: Influenza
     Route: 048
     Dates: start: 20231218, end: 20231218
  2. CALONAL [Concomitant]
     Active Substance: ACETAMINOPHEN
     Indication: Influenza
     Route: 048
     Dates: start: 20231218, end: 20231218
  3. TRANSAMIN [Concomitant]
     Active Substance: TRANEXAMIC ACID
     Indication: Influenza
     Dosage: STRENGTH: 2250 MG/DAY
     Route: 048
     Dates: start: 20231218, end: 20231222
  4. AMBROXOL HYDROCHLORIDE [Concomitant]
     Active Substance: AMBROXOL HYDROCHLORIDE
     Indication: Influenza
     Route: 048
     Dates: start: 20231218, end: 20231218
  5. FEXOFENADINE HYDROCHLORIDE [Concomitant]
     Active Substance: FEXOFENADINE HYDROCHLORIDE
     Indication: Influenza
     Route: 048
     Dates: start: 20231218, end: 20231218
  6. DEXTROMETHORPHAN HYDROBROMIDE [Concomitant]
     Active Substance: DEXTROMETHORPHAN HYDROBROMIDE
     Indication: Influenza
     Route: 048
     Dates: start: 20231218, end: 20231218

REACTIONS (1)
  - Enterocolitis haemorrhagic [Recovered/Resolved]

NARRATIVE: CASE EVENT DATE: 20231218
